FAERS Safety Report 21823795 (Version 2)
Quarter: 2023Q1

REPORT INFORMATION
  Report Type: Spontaneous
  Country: CN (occurrence: CN)
  Receive Date: 20230105
  Receipt Date: 20230111
  Transmission Date: 20230418
  Serious: Yes (Other)
  Sender: FDA-Public Use
  Company Number: CN-009507513-2301CHN000482

PATIENT
  Age: 58 Year
  Sex: Male
  Weight: 59.5 kg

DRUGS (6)
  1. KEYTRUDA [Suspect]
     Active Substance: PEMBROLIZUMAB
     Indication: Lung squamous cell carcinoma metastatic
     Dosage: 100 MG, ONCE
     Route: 041
     Dates: start: 20221031, end: 20221031
  2. PACLITAXEL [Suspect]
     Active Substance: PACLITAXEL
     Indication: Lung squamous cell carcinoma metastatic
     Dosage: 0.2G, ONCE
     Route: 041
     Dates: start: 20221027, end: 20221027
  3. CARBOPLATIN [Suspect]
     Active Substance: CARBOPLATIN
     Indication: Lung squamous cell carcinoma metastatic
     Dosage: 300 MG, ONCE
     Route: 041
     Dates: start: 20221027, end: 20221027
  4. SODIUM CHLORIDE [Concomitant]
     Active Substance: SODIUM CHLORIDE
     Indication: Lung squamous cell carcinoma metastatic
     Dosage: 40ML, ONCE
     Route: 041
     Dates: start: 20221027, end: 20221027
  5. SODIUM CHLORIDE [Concomitant]
     Active Substance: SODIUM CHLORIDE
     Dosage: 100 ML, ONCE
     Route: 041
     Dates: start: 20221031, end: 20221031
  6. DEXTROSE [Concomitant]
     Active Substance: DEXTROSE
     Indication: Lung squamous cell carcinoma metastatic
     Dosage: 500ML, ONCE
     Route: 041
     Dates: start: 20221027, end: 20221027

REACTIONS (3)
  - Aspartate aminotransferase increased [Recovering/Resolving]
  - Alanine aminotransferase increased [Recovering/Resolving]
  - Underdose [Unknown]

NARRATIVE: CASE EVENT DATE: 20221031
